FAERS Safety Report 9604131 (Version 1)
Quarter: 2013Q4

REPORT INFORMATION
  Report Type: Report from Study
  Country: US (occurrence: US)
  Receive Date: 20131008
  Receipt Date: 20131008
  Transmission Date: 20140711
  Serious: Yes (Hospitalization, Other)
  Sender: FDA-Public Use
  Company Number: US-CELGENEUS-163-21660-13094533

PATIENT
  Age: 64 Year
  Sex: Male
  Weight: 78.7 kg

DRUGS (25)
  1. ABRAXANE [Suspect]
     Indication: COLON CANCER METASTATIC
     Dosage: 180 MILLIGRAM/SQ. METER
     Route: 065
     Dates: start: 20130909, end: 20130916
  2. ABRAXANE [Suspect]
     Route: 065
     Dates: start: 20130722
  3. ATORVASTATIN CALCIUM [Concomitant]
     Indication: PRODUCT USED FOR UNKNOWN INDICATION
     Dosage: 40 MILLIGRAM
     Route: 048
     Dates: start: 20130916
  4. POLYETHYLENE GLYCOL [Concomitant]
     Indication: PRODUCT USED FOR UNKNOWN INDICATION
     Dosage: 34 GRAM
     Route: 048
     Dates: start: 20130914
  5. SODIUM CHLORIDE [Concomitant]
     Indication: PRODUCT USED FOR UNKNOWN INDICATION
     Dosage: 20 MILLILITER
     Route: 041
     Dates: start: 20130913
  6. PANTOPRAZOLE SODIUM [Concomitant]
     Indication: PRODUCT USED FOR UNKNOWN INDICATION
     Dosage: 40 MILLIGRAM
     Route: 048
     Dates: start: 20130913
  7. HYDROMORPHONE [Concomitant]
     Indication: PRODUCT USED FOR UNKNOWN INDICATION
     Route: 041
     Dates: start: 20130913
  8. ENOXAPARIN [Concomitant]
     Indication: PRODUCT USED FOR UNKNOWN INDICATION
     Dosage: 30 MILLIGRAM
     Route: 058
     Dates: start: 20130913
  9. ACETAMINOPHEN [Concomitant]
     Indication: PRODUCT USED FOR UNKNOWN INDICATION
     Route: 048
     Dates: start: 20130913
  10. ASA [Concomitant]
     Indication: HYPERLIPIDAEMIA
     Dosage: 81 MILLIGRAM
     Route: 048
     Dates: start: 20130913
  11. METOPROLOL TARTRATE [Concomitant]
     Indication: CARDIAC DISORDER
     Dosage: 50 MILLIGRAM
     Route: 048
     Dates: start: 20130913
  12. DEXTROMETHORPHAN-GUAIFENESIN [Concomitant]
     Indication: PRODUCT USED FOR UNKNOWN INDICATION
     Dosage: 90 MILLILITER
     Route: 048
     Dates: start: 20130913
  13. ALLOPURINOL [Concomitant]
     Indication: PRODUCT USED FOR UNKNOWN INDICATION
     Route: 048
  14. LIPITOR [Concomitant]
     Indication: HYPERLIPIDAEMIA
     Route: 048
  15. FLOMAX [Concomitant]
     Indication: BENIGN PROSTATIC HYPERPLASIA
     Route: 065
  16. TESSALON PEARLS [Concomitant]
     Indication: COUGH
     Route: 065
  17. NEULASTA [Concomitant]
     Indication: PANCYTOPENIA
     Route: 065
  18. COMPAZINE [Concomitant]
     Indication: NAUSEA
     Route: 048
  19. COMPAZINE [Concomitant]
     Indication: VOMITING
  20. ISOSORBIDE MONONITRATE [Concomitant]
     Indication: PRODUCT USED FOR UNKNOWN INDICATION
     Dosage: 40 MILLIGRAM
     Route: 048
  21. NYSTATIN [Concomitant]
     Indication: PRODUCT USED FOR UNKNOWN INDICATION
     Dosage: 1 APPLICATION
     Route: 065
  22. SENOKOT-S [Concomitant]
     Indication: CONSTIPATION
     Route: 048
  23. ZOFRAN [Concomitant]
     Indication: NAUSEA
     Route: 048
  24. ZOFRAN [Concomitant]
     Indication: VOMITING
  25. PEGFILGRASTIM [Concomitant]
     Indication: PRODUCT USED FOR UNKNOWN INDICATION
     Route: 065
     Dates: start: 20130910

REACTIONS (2)
  - Influenza like illness [Recovered/Resolved]
  - Pyrexia [Recovered/Resolved]
